FAERS Safety Report 4887285-2 (Version None)
Quarter: 2005Q4

REPORT INFORMATION
  Report Type: 
  Country: None (occurrence: None)
  Receive Date: 20051221
  Receipt Date: 20051025
  Transmission Date: 20060501
  Serious: No
  Sender: FDA-Public Use
  Company Number: US-YAMANOUCHI-YPA20050500

PATIENT
  Age: 85 Year
  Sex: Female

DRUGS (5)
  1. VESICARE [Suspect]
     Indication: HYPERTONIC BLADDER
     Dosage: 5 MG QD PO
     Route: 048
     Dates: start: 20050701
  2. NEXIUM [Concomitant]
  3. LOPRESSOR [Concomitant]
  4. LIPITOR [Concomitant]
  5. VITAMINS [Concomitant]

REACTIONS (4)
  - DRY MOUTH [None]
  - DRY THROAT [None]
  - MICTURITION URGENCY [None]
  - THROAT IRRITATION [None]
